FAERS Safety Report 9919622 (Version 2)
Quarter: 2014Q2

REPORT INFORMATION
  Report Type: Report from Study
  Country: MX (occurrence: MX)
  Receive Date: 20140224
  Receipt Date: 20140403
  Transmission Date: 20141212
  Serious: Yes (Hospitalization, Other)
  Sender: FDA-Public Use
  Company Number: PHHY2014MX018589

PATIENT
  Age: 77 Year
  Sex: Female
  Weight: 73.5 kg

DRUGS (9)
  1. ONBREZ [Suspect]
     Indication: ASTHMA
     Dosage: 1 DF, DAILY
     Route: 055
     Dates: start: 2013, end: 201310
  2. ONBREZ [Suspect]
     Indication: OFF LABEL USE
  3. CO-DIOVAN [Suspect]
     Indication: HYPERTENSION
     Dosage: 1 DF (80MG VALS+12.5MG HCT), DAILY
     Route: 048
     Dates: start: 20060619, end: 201311
  4. CO-DIOVAN [Suspect]
     Dosage: 1.5 DF (80MG VALS+12.5MG HCT), DAILY
     Route: 048
     Dates: start: 201311
  5. CO-DIOVAN [Suspect]
     Dosage: 1 DF (80MG VALS+12.5MG HCT), UNK
     Dates: start: 201403
  6. CLONAZEPAM [Concomitant]
     Indication: SLEEP DISORDER
     Dosage: 1 DF (2MG), DAILY
     Route: 048
     Dates: start: 201306
  7. ZENHALE [Concomitant]
     Indication: ASTHMA
     Dosage: 2 DF, BID
     Route: 055
     Dates: start: 201311
  8. ZENHALE [Concomitant]
     Dosage: 4 DF, DAILY
     Dates: start: 201401
  9. ALVESCO [Concomitant]
     Indication: ASTHMA
     Dosage: 2 DF, DAILY

REACTIONS (11)
  - Kidney infection [Recovered/Resolved]
  - Blood pressure increased [Recovered/Resolved]
  - Dizziness [Recovered/Resolved]
  - Dysstasia [Recovered/Resolved]
  - Blood pressure decreased [Recovered/Resolved]
  - Salmonellosis [Recovered/Resolved]
  - Dehydration [Recovered/Resolved]
  - Blood glucose decreased [Not Recovered/Not Resolved]
  - Peripheral swelling [Not Recovered/Not Resolved]
  - Fatigue [Not Recovered/Not Resolved]
  - Wrong technique in drug usage process [Unknown]
